FAERS Safety Report 23981106 (Version 2)
Quarter: 2024Q2

REPORT INFORMATION
  Report Type: Spontaneous
  Country: AU (occurrence: AU)
  Receive Date: 20240617
  Receipt Date: 20240620
  Transmission Date: 20240716
  Serious: Yes (Disabling, Other)
  Sender: FDA-Public Use
  Company Number: AU-MACLEODS PHARMA-MAC2024047660

PATIENT

DRUGS (2)
  1. TRIAMCINOLONE [Suspect]
     Active Substance: TRIAMCINOLONE
     Indication: Cystoid macular oedema
     Dosage: SUB TENON INJECTION
  2. OZURDEX [Concomitant]
     Active Substance: DEXAMETHASONE
     Indication: Cystoid macular oedema
     Route: 035

REACTIONS (7)
  - Eye abscess [Recovering/Resolving]
  - Orbital compartment syndrome [Recovering/Resolving]
  - Eye infection staphylococcal [Recovering/Resolving]
  - Ophthalmoplegia [Recovering/Resolving]
  - Pupillary reflex impaired [Recovering/Resolving]
  - Staphylococcal abscess [Recovering/Resolving]
  - Blindness [Not Recovered/Not Resolved]
